FAERS Safety Report 5338553-1 (Version None)
Quarter: 2007Q2

REPORT INFORMATION
  Report Type: 
  Country: None (occurrence: None)
  Receive Date: 20070530
  Receipt Date: 20070523
  Transmission Date: 20071010
  Serious: Yes (Other)
  Sender: FDA-Public Use
  Company Number: AU-AVENTIS-200714568GDDC

PATIENT
  Age: 42 Year
  Sex: Male

DRUGS (7)
  1. LANTUS [Suspect]
     Route: 058
     Dates: start: 20020601
  2. AUTOPEN 24 [Suspect]
     Route: 058
  3. NOVORAPID [Concomitant]
  4. NEXIUM [Concomitant]
  5. CREON [Concomitant]
  6. ENDONE [Concomitant]
  7. FENTANYL [Concomitant]

REACTIONS (2)
  - PAIN [None]
  - PANCREATITIS CHRONIC [None]
